FAERS Safety Report 6389528-5 (Version None)
Quarter: 2009Q4

REPORT INFORMATION
  Report Type: 
  Country: None (occurrence: None)
  Receive Date: 20091005
  Receipt Date: 20091005
  Transmission Date: 20100525
  Serious: No
  Sender: FDA-Public Use
  Company Number: None

PATIENT
  Age: 82 Year
  Sex: Female

DRUGS (1)
  1. SULFASALAZINE TAB 500 MG QUALITEST [Suspect]
     Indication: COLITIS
     Dosage: 180 1 TAB TWICE DAILY PO
     Route: 048
     Dates: start: 20090626, end: 20090928

REACTIONS (4)
  - DRUG HYPERSENSITIVITY [None]
  - PRURITUS [None]
  - RASH [None]
  - STOMATITIS [None]
